FAERS Safety Report 6332846-7 (Version None)
Quarter: 2009Q3

REPORT INFORMATION
  Report Type: 
  Country: None (occurrence: None)
  Receive Date: 20090828
  Receipt Date: 20090821
  Transmission Date: 20100115
  Serious: Yes (Other)
  Sender: FDA-Public Use
  Company Number: US-ABBOTT-07P-163-0367452-00

PATIENT
  Sex: Female
  Weight: 50.394 kg

DRUGS (4)
  1. HUMIRA [Suspect]
     Indication: RHEUMATOID ARTHRITIS
     Route: 058
     Dates: start: 20050101, end: 20050801
  2. HUMIRA [Suspect]
     Route: 058
     Dates: start: 20070428
  3. PREDNISONE TAB [Concomitant]
     Indication: RHEUMATOID ARTHRITIS
     Route: 048
  4. NORETHINDRONE AND ETHINYL ESTRADIOL [Concomitant]
     Indication: CONTRACEPTION
     Route: 048

REACTIONS (3)
  - CYST [None]
  - INCORRECT DOSE ADMINISTERED [None]
  - UNINTENDED PREGNANCY [None]
